FAERS Safety Report 5383328-0 (Version None)
Quarter: 2007Q3

REPORT INFORMATION
  Report Type: 
  Country: None (occurrence: None)
  Receive Date: 20070710
  Receipt Date: 20070628
  Transmission Date: 20080115
  Serious: Yes (Other)
  Sender: FDA-Public Use
  Company Number: CA-PFIZER INC-2007054190

PATIENT
  Sex: Female

DRUGS (6)
  1. LIPITOR [Suspect]
     Route: 048
  2. INDERAL [Concomitant]
     Route: 048
  3. PREMARIN [Concomitant]
     Route: 048
  4. VAGIFEM [Concomitant]
  5. HYDROCHLOROTHIAZIDE [Concomitant]
     Indication: OEDEMA
     Route: 048
  6. ASPIRIN [Concomitant]
     Route: 048

REACTIONS (1)
  - MUSCLE ATROPHY [None]
